FAERS Safety Report 18714562 (Version 1)
Quarter: 2021Q1

REPORT INFORMATION
  Report Type: Spontaneous
  Country: US (occurrence: US)
  Receive Date: 20210108
  Receipt Date: 20210108
  Transmission Date: 20210419
  Serious: Yes (Other)
  Sender: FDA-Public Use
  Company Number: US-SA-2021SA003624

PATIENT

DRUGS (1)
  1. GOLD BOND ORIGINAL STRENGTH POWDER [Suspect]
     Active Substance: MENTHOL\ZINC OXIDE
     Dosage: UNK
     Dates: start: 1973, end: 2020

REACTIONS (5)
  - Mesothelioma [Unknown]
  - Emotional distress [Unknown]
  - Occupational exposure to product [Unknown]
  - Exposure to chemical pollution [Unknown]
  - Injury [Unknown]
